FAERS Safety Report 6426291-3 (Version None)
Quarter: 2009Q4

REPORT INFORMATION
  Report Type: 
  Country: None (occurrence: None)
  Receive Date: 20091104
  Receipt Date: 20091026
  Transmission Date: 20100525
  Serious: Yes (Other)
  Sender: FDA-Public Use
  Company Number: KR-ROCHE-664650

PATIENT
  Age: 63 Year
  Sex: Male
  Weight: 73 kg

DRUGS (5)
  1. RIBAVIRIN [Suspect]
     Dosage: DOSAGE MAINTAINED FOR FIVE WEEKS.
     Route: 065
  2. RIBAVIRIN [Suspect]
     Dosage: DOSAGE REDUCED.
     Route: 065
  3. PEG-INTERFERON ALPHA 2B [Suspect]
     Route: 065
  4. PEG-INTERFERON ALPHA 2B [Suspect]
     Dosage: DOSAGE REDUCED.
     Route: 065
  5. PEG-INTERFERON ALPHA 2B [Suspect]
     Dosage: FURTHER REDUCED.
     Route: 065

REACTIONS (6)
  - ASTHENIA [None]
  - DIZZINESS [None]
  - EPISTAXIS [None]
  - OCULAR MYASTHENIA [None]
  - PYREXIA [None]
  - RASH PRURITIC [None]
